FAERS Safety Report 22524544 (Version 1)
Quarter: 2023Q2

REPORT INFORMATION
  Report Type: Spontaneous
  Country: KR (occurrence: KR)
  Receive Date: 20230606
  Receipt Date: 20230606
  Transmission Date: 20230722
  Serious: Yes (Hospitalization)
  Sender: FDA-Public Use
  Company Number: KR-ORGANON-O2306KOR000141

PATIENT
  Age: 72 Year
  Sex: Male
  Weight: 57 kg

DRUGS (3)
  1. COZAAR [Suspect]
     Active Substance: LOSARTAN POTASSIUM
     Indication: Essential hypertension
     Dosage: UNK
     Route: 048
     Dates: start: 200910
  2. EZETIMIBE [Concomitant]
     Active Substance: EZETIMIBE
     Indication: Hyperlipidaemia
     Dosage: UNK
     Route: 048
  3. PROPAFENONE HYDROCHLORIDE [Concomitant]
     Active Substance: PROPAFENONE HYDROCHLORIDE
     Indication: Essential hypertension
     Dosage: UNK
     Route: 048
     Dates: start: 20191028

REACTIONS (1)
  - Bladder disorder [Recovered/Resolved]

NARRATIVE: CASE EVENT DATE: 20200120
